FAERS Safety Report 7107380-7 (Version None)
Quarter: 2010Q4

REPORT INFORMATION
  Report Type: 
  Country: None (occurrence: None)
  Receive Date: 20101112
  Receipt Date: 20101112
  Transmission Date: 20110411
  Serious: Yes (Hospitalization, Other)
  Sender: FDA-Public Use
  Company Number: None

PATIENT
  Sex: Female

DRUGS (33)
  1. CLOFARABINE 1MG/ML - GENZYME [Suspect]
     Indication: ACUTE MYELOID LEUKAEMIA
     Dosage: 55MG QD IV
     Route: 042
     Dates: start: 20100929, end: 20101003
  2. OMNIPAQUE 140 [Concomitant]
  3. OPTIRAY 350 [Concomitant]
  4. TYLENOL-500 [Concomitant]
  5. ACETAMINOPHEN [Concomitant]
  6. ALLOPURINOL [Concomitant]
  7. CYTOXAN [Concomitant]
  8. CYTARABINE IT [Concomitant]
  9. ETOPOSIDE [Concomitant]
  10. ATIVAN [Concomitant]
  11. VERGED [Concomitant]
  12. ZOFRAN [Concomitant]
  13. RASBURICOSE [Concomitant]
  14. BUMEX [Concomitant]
  15. BENADRYL [Concomitant]
  16. NEUPOGEN [Concomitant]
  17. HYDROCORTISONE [Concomitant]
  18. MEROPENEM [Concomitant]
  19. MICAFUNGIN [Concomitant]
  20. PROTONIX [Concomitant]
  21. VITAMIN K TAB [Concomitant]
  22. PRISMASOL [Concomitant]
  23. TRANSDERM PATCH [Concomitant]
  24. BACTRIM [Concomitant]
  25. VANCOMYCIN HCL [Concomitant]
  26. PITRESSIN [Concomitant]
  27. .. [Concomitant]
  28. .. [Concomitant]
  29. ... [Concomitant]
  30. ... [Concomitant]
  31. ... [Concomitant]
  32. .. [Concomitant]
  33. .. [Concomitant]

REACTIONS (4)
  - DIALYSIS [None]
  - HYPOTENSION [None]
  - OEDEMA [None]
  - RENAL FAILURE [None]
